FAERS Safety Report 9315027 (Version 2)
Quarter: 2013Q4

REPORT INFORMATION
  Report Type: Report from Study
  Country: US (occurrence: US)
  Receive Date: 20130529
  Receipt Date: 20131104
  Transmission Date: 20140711
  Serious: Yes (Other)
  Sender: FDA-Public Use
  Company Number: US-US-EMD SERONO, INC.-7213459

PATIENT
  Age: 60 Year
  Sex: Female
  Weight: 49 kg

DRUGS (6)
  1. REBIF [Suspect]
     Indication: MULTIPLE SCLEROSIS
     Route: 058
     Dates: start: 20050516
  2. VENTOLIN                           /00139501/ [Concomitant]
  3. TIZANIDINE [Concomitant]
     Indication: MUSCLE SPASTICITY
     Route: 048
     Dates: start: 201110
  4. ZANTAC [Concomitant]
     Indication: GASTROOESOPHAGEAL REFLUX DISEASE
     Dosage: 150
     Route: 048
  5. CLONAZEPAM [Concomitant]
     Indication: INSOMNIA
     Route: 048
     Dates: start: 200804
  6. PROVIGIL [Concomitant]
     Indication: FATIGUE
     Route: 048
     Dates: start: 200804

REACTIONS (6)
  - Basedow^s disease [Unknown]
  - Autoimmune thyroiditis [Unknown]
  - Optic neuritis [Not Recovered/Not Resolved]
  - Osteopenia [Not Recovered/Not Resolved]
  - Osteoporosis [Not Recovered/Not Resolved]
  - Glucose tolerance impaired [Recovering/Resolving]
